FAERS Safety Report 6082455-2 (Version None)
Quarter: 2009Q1

REPORT INFORMATION
  Report Type: 
  Country: None (occurrence: None)
  Receive Date: 20090202
  Receipt Date: 20070711
  Transmission Date: 20090719
  Serious: No
  Sender: FDA-Public Use
  Company Number: 264547

PATIENT
  Age: 70 Year
  Sex: Female
  Weight: 63.9 kg

DRUGS (7)
  1. NOVOLOG [Suspect]
     Indication: TYPE 1 DIABETES MELLITUS
     Dosage: 30 IU, QD + SLIDING SCALE, SUBCUTAN.-PUMP
     Dates: end: 20070602
  2. SYNTHROID [Concomitant]
  3. LASIX [Concomitant]
  4. VASOTEC /00574902/ (ENALAPRIL MALEATE) [Concomitant]
  5. MEVACOR [Concomitant]
  6. PERCOCET /00446701/ (OXYCODONE HYDROCHLORIDE, OXYCODONE TEREPHTHALATE, [Concomitant]
  7. PAXIL [Concomitant]

REACTIONS (1)
  - DIABETIC KETOACIDOSIS [None]
